FAERS Safety Report 10994299 (Version 1)
Quarter: 2015Q2

REPORT INFORMATION
  Report Type: Spontaneous
  Country: CA (occurrence: CA)
  Receive Date: 20150407
  Receipt Date: 20150407
  Transmission Date: 20150821
  Serious: Yes (Other)
  Sender: FDA-Public Use
  Company Number: CA-TEVA-552643ACC

PATIENT
  Age: 70 Year
  Sex: Female

DRUGS (1)
  1. NAPROXEN. [Suspect]
     Active Substance: NAPROXEN
     Indication: ARTHRALGIA
     Dosage: 2 DOSAGE FORMS DAILY;
     Route: 048

REACTIONS (4)
  - Suicidal ideation [Recovered/Resolved with Sequelae]
  - Crying [Recovered/Resolved with Sequelae]
  - Depression [Recovered/Resolved with Sequelae]
  - Disorientation [Recovered/Resolved with Sequelae]
